FAERS Safety Report 5127571-4 (Version None)
Quarter: 2006Q4

REPORT INFORMATION
  Report Type: 
  Country: None (occurrence: None)
  Receive Date: 20061011
  Receipt Date: 20060925
  Transmission Date: 20070319
  Serious: Yes (Life-Threatening)
  Sender: FDA-Public Use
  Company Number: 2006EU002682

PATIENT
  Age: 48 Year
  Sex: Female

DRUGS (3)
  1. PROTOPIC [Suspect]
     Dosage: 0.1%, BID; TOPICAL; 0.03%, UNK; TOPICAL
     Route: 061
     Dates: start: 20050101, end: 20050101
  2. PROTOPIC [Suspect]
     Dosage: 0.1%, BID; TOPICAL; 0.03%, UNK; TOPICAL
     Route: 061
     Dates: start: 20050101, end: 20050101
  3. NEORAL [Concomitant]

REACTIONS (3)
  - DRUG INEFFECTIVE [None]
  - MYCOSIS FUNGOIDES [None]
  - T-CELL LYMPHOMA [None]
